FAERS Safety Report 7311418-1 (Version None)
Quarter: 2011Q1

REPORT INFORMATION
  Report Type: 
  Country: None (occurrence: None)
  Receive Date: 20110224
  Receipt Date: 20110215
  Transmission Date: 20110831
  Serious: Yes (Hospitalization)
  Sender: FDA-Public Use
  Company Number: DE-B.I. PHARMACEUTICALS,INC./RIDGEFIELD-2010-DE-06378DE

PATIENT
  Sex: Male

DRUGS (3)
  1. POSTTREATMENT (DABIGATRAN) [Suspect]
     Indication: THROMBOSIS PROPHYLAXIS
     Dates: end: 20100622
  2. POSTTREATMENT (DABIGATRAN) [Suspect]
     Indication: HIP ARTHROPLASTY
  3. POSTTREATMENT (DABIGATRAN) [Suspect]
     Indication: KNEE ARTHROPLASTY

REACTIONS (1)
  - THROMBOSIS [None]
